FAERS Safety Report 6327874-1 (Version None)
Quarter: 2009Q3

REPORT INFORMATION
  Report Type: 
  Country: None (occurrence: None)
  Receive Date: 20090824
  Receipt Date: 20090813
  Transmission Date: 20100115
  Serious: Yes (Hospitalization)
  Sender: FDA-Public Use
  Company Number: GXKR2009HR09180

PATIENT
  Age: 60 Year
  Sex: Male

DRUGS (3)
  1. ACETYLSALICYLIC ACID (NGX) (ACETYLSALICYLIC ACID) TABLET, 100 MG [Suspect]
  2. CLOPIDOGREL [Suspect]
  3. WARFARIN SODIUM [Suspect]

REACTIONS (8)
  - CHEST PAIN [None]
  - DUODENAL ULCER [None]
  - DYSPHAGIA [None]
  - EROSIVE OESOPHAGITIS [None]
  - GASTRIC ULCER [None]
  - GASTROINTESTINAL HAEMORRHAGE [None]
  - ODYNOPHAGIA [None]
  - OESOPHAGEAL ULCER [None]
